FAERS Safety Report 10660827 (Version 1)
Quarter: 2014Q4

REPORT INFORMATION
  Report Type: Spontaneous
  Country: FR (occurrence: FR)
  Receive Date: 20141217
  Receipt Date: 20141217
  Transmission Date: 20150529
  Serious: Yes (Death)
  Sender: FDA-Public Use
  Company Number: FR-MYLANLABS-2014M1014147

PATIENT

DRUGS (1)
  1. FONDAPARINUX [Suspect]
     Active Substance: FONDAPARINUX
     Indication: PHLEBITIS
     Dosage: 7.5 MG/0.6ML, QD
     Route: 058
     Dates: start: 201312, end: 20140330

REACTIONS (1)
  - Cerebral haemorrhage [Fatal]

NARRATIVE: CASE EVENT DATE: 20140330
